FAERS Safety Report 18806416 (Version 5)
Quarter: 2021Q2

REPORT INFORMATION
  Report Type: Report from Study
  Country: FR (occurrence: FR)
  Receive Date: 20210128
  Receipt Date: 20210423
  Transmission Date: 20210717
  Serious: No
  Sender: FDA-Public Use
  Company Number: FR-REGENERON PHARMACEUTICALS, INC.-2021-16088

PATIENT

DRUGS (4)
  1. ISA101B [Suspect]
     Active Substance: INVESTIGATIONAL PRODUCT
     Indication: OROPHARYNGEAL CANCER
     Dosage: 100 MICROGRAM, SINGLE
     Route: 058
     Dates: start: 20201123, end: 20201123
  2. CEMIPLIMAB [Suspect]
     Active Substance: CEMIPLIMAB
     Dosage: 350 MILLIGRAM EVERY 3 WEEKS
     Route: 042
     Dates: start: 20201221, end: 20201221
  3. ISA101B [Suspect]
     Active Substance: INVESTIGATIONAL PRODUCT
     Dosage: 100 MICROGRAM
     Route: 058
     Dates: start: 20201221, end: 20201221
  4. CEMIPLIMAB [Suspect]
     Active Substance: CEMIPLIMAB
     Indication: OROPHARYNGEAL CANCER
     Dosage: 350 MILLIGRAM EVERY 3 WEEKS
     Route: 042
     Dates: start: 20201130, end: 20201130

REACTIONS (2)
  - Hypotension [Recovered/Resolved]
  - Rash [Recovered/Resolved]

NARRATIVE: CASE EVENT DATE: 20201221
